FAERS Safety Report 16811979 (Version 2)
Quarter: 2019Q4

REPORT INFORMATION
  Report Type: Report from Study
  Country: MX (occurrence: MX)
  Receive Date: 20190916
  Receipt Date: 20191001
  Transmission Date: 20200122
  Serious: Yes (Other)
  Sender: FDA-Public Use
  Company Number: PHHY2019MX194776

PATIENT
  Age: 9 Year
  Sex: Male
  Weight: 47 kg

DRUGS (1)
  1. TRILEPTAL [Suspect]
     Active Substance: OXCARBAZEPINE
     Indication: SEIZURE
     Dosage: 3 ML, Q12H (60MG/1ML SUSPENSION 100ML)
     Route: 048
     Dates: start: 201804

REACTIONS (12)
  - Weight increased [Unknown]
  - Vomiting [Unknown]
  - Pharyngitis [Recovered/Resolved]
  - Attention deficit/hyperactivity disorder [Not Recovered/Not Resolved]
  - Pyrexia [Unknown]
  - Growth disorder [Unknown]
  - Hunger [Unknown]
  - Pain [Unknown]
  - Hyperphagia [Unknown]
  - Thermal burn [Unknown]
  - Discharge [Unknown]
  - Hypoaesthesia [Unknown]

NARRATIVE: CASE EVENT DATE: 201907
